FAERS Safety Report 23056426 (Version 1)
Quarter: 2023Q4

REPORT INFORMATION
  Report Type: Spontaneous
  Country: US (occurrence: US)
  Receive Date: 20231011
  Receipt Date: 20231011
  Transmission Date: 20240110
  Serious: Yes (Other)
  Sender: FDA-Public Use
  Company Number: US-INCYTE CORPORATION-2023IN010391

PATIENT

DRUGS (1)
  1. JAKAFI [Suspect]
     Active Substance: RUXOLITINIB
     Dosage: 10 MILLIGRAM, BID
     Route: 048

REACTIONS (6)
  - Haemorrhage [Unknown]
  - White blood cell count decreased [Unknown]
  - Pain [Unknown]
  - Fatigue [Unknown]
  - Contusion [Unknown]
  - Nausea [Unknown]
